FAERS Safety Report 5562945-9 (Version None)
Quarter: 2007Q4

REPORT INFORMATION
  Report Type: 
  Country: None (occurrence: None)
  Receive Date: 20071212
  Receipt Date: 20071212
  Transmission Date: 20080405
  Serious: No
  Sender: FDA-Public Use
  Company Number: None

PATIENT
  Age: 48 Year
  Sex: Male

DRUGS (2)
  1. LEVOTHYROXINE SODIUM [Suspect]
     Dosage: 0.2MG  EVERY DAY PO
     Route: 048
     Dates: start: 20071029
  2. LIOTHYRONINE SODIUM [Suspect]
     Dosage: 25MCG BID PO
     Route: 048
     Dates: start: 20071029

REACTIONS (2)
  - HYPERREFLEXIA [None]
  - TREMOR [None]
